FAERS Safety Report 8780663 (Version 2)
Quarter: 2012Q4

REPORT INFORMATION
  Report Type: 
  Country: US (occurrence: US)
  Receive Date: 20120913
  Receipt Date: 20121015
  Transmission Date: 20130627
  Serious: Yes (Other)
  Sender: FDA-Public Use
  Company Number: US-BAYER-2012-092858

PATIENT
  Age: 22 Year
  Sex: Female
  Weight: 58.96 kg

DRUGS (2)
  1. MIRENA [Suspect]
     Indication: CONTRACEPTION
     Dosage: 20 mcg/24hr, CONT
     Route: 015
     Dates: start: 20120811, end: 20120811
  2. MIRENA [Suspect]
     Indication: MENORRHAGIA

REACTIONS (3)
  - Presyncope [Recovering/Resolving]
  - Syncope [Recovering/Resolving]
  - Device difficult to use [None]
